FAERS Safety Report 24639799 (Version 1)
Quarter: 2024Q4

REPORT INFORMATION
  Report Type: Report from Study
  Country: CO (occurrence: CO)
  Receive Date: 20241120
  Receipt Date: 20241120
  Transmission Date: 20250114
  Serious: Yes (Death)
  Sender: ABBVIE
  Company Number: CO-ABBVIE-6010373

PATIENT
  Age: 29 Year
  Sex: Female

DRUGS (1)
  1. VENCLEXTA [Suspect]
     Active Substance: VENETOCLAX
     Indication: Acute myeloid leukaemia
     Dosage: FORM STRENGTH: 100 MG
     Route: 048
     Dates: start: 20241016, end: 20241026

REACTIONS (2)
  - Acute myeloid leukaemia [Fatal]
  - Oncologic complication [Fatal]

NARRATIVE: CASE EVENT DATE: 20241026
